FAERS Safety Report 15975197 (Version 1)
Quarter: 2019Q1

REPORT INFORMATION
  Report Type: Spontaneous
  Country: RU (occurrence: RU)
  Receive Date: 20190218
  Receipt Date: 20190218
  Transmission Date: 20190418
  Serious: Yes (Death, Other)
  Sender: FDA-Public Use
  Company Number: RU-ROCHE-2266221

PATIENT
  Age: 34 Year
  Sex: Male

DRUGS (19)
  1. AMIKACIN. [Suspect]
     Active Substance: AMIKACIN
     Indication: PSEUDOMONAS INFECTION
     Route: 065
  2. ERYTHROMYCIN. [Concomitant]
     Active Substance: ERYTHROMYCIN
     Indication: INFREQUENT BOWEL MOVEMENTS
  3. GANCICLOVIR. [Suspect]
     Active Substance: GANCICLOVIR
     Indication: CYTOMEGALOVIRUS INFECTION
     Route: 065
  4. DORIPENEM. [Suspect]
     Active Substance: DORIPENEM
     Indication: PSEUDOMONAS INFECTION
     Route: 065
  5. MOXIFLOXACIN. [Suspect]
     Active Substance: MOXIFLOXACIN
     Indication: BACTERIAL SEPSIS
     Route: 065
  6. ANIDULAFUNGIN [Suspect]
     Active Substance: ANIDULAFUNGIN
     Indication: BACTERIAL SEPSIS
     Route: 065
  7. NORADRENALINE [Concomitant]
     Active Substance: NOREPINEPHRINE
     Indication: BLOOD PRESSURE DECREASED
  8. METOCLOPRAMIDE. [Concomitant]
     Active Substance: METOCLOPRAMIDE
     Indication: INFREQUENT BOWEL MOVEMENTS
  9. METHYLPREDNISOLONE. [Suspect]
     Active Substance: METHYLPREDNISOLONE
     Indication: IMMUNOSUPPRESSION
     Route: 065
     Dates: start: 20161026
  10. CEFTAZIDIME. [Suspect]
     Active Substance: CEFTAZIDIME
     Indication: BACTERIAL SEPSIS
     Route: 065
  11. BOTULINUM TOXIN TYPE A [Concomitant]
     Active Substance: BOTULINUM TOXIN TYPE A
  12. CYCLOSPORIN A [Suspect]
     Active Substance: CYCLOSPORINE
     Indication: IMMUNOSUPPRESSION
     Route: 065
     Dates: start: 20161026
  13. POLYMYXIN B. [Suspect]
     Active Substance: POLYMYXIN B
     Indication: PSEUDOMONAS INFECTION
     Route: 065
  14. TACROLIMUS. [Concomitant]
     Active Substance: TACROLIMUS
     Indication: IMMUNOSUPPRESSION
  15. RUXOLITINIB [Concomitant]
     Active Substance: RUXOLITINIB
     Indication: IMPAIRED GASTRIC EMPTYING
  16. SULFAMETHOXAZOLE/TRIMETHOPRIM [Suspect]
     Active Substance: SULFAMETHOXAZOLE\TRIMETHOPRIM
     Indication: BACTERIAL SEPSIS
     Route: 065
  17. MEROPENEM. [Suspect]
     Active Substance: MEROPENEM
     Indication: BACTERIAL SEPSIS
     Route: 065
  18. COLISTIMETHATE SODIUM. [Suspect]
     Active Substance: COLISTIMETHATE SODIUM
     Indication: BACTERIAL SEPSIS
     Route: 065
  19. FOSCARNET [Concomitant]
     Active Substance: FOSCARNET
     Indication: CYTOMEGALOVIRUS INFECTION

REACTIONS (5)
  - Multiple organ dysfunction syndrome [Fatal]
  - Drug ineffective [Unknown]
  - Impaired gastric emptying [Recovered/Resolved]
  - Acute graft versus host disease in intestine [Not Recovered/Not Resolved]
  - Septic shock [Unknown]
